FAERS Safety Report 8847488 (Version 2)
Quarter: 2012Q4

REPORT INFORMATION
  Report Type: Report from Study
  Country: AT (occurrence: AT)
  Receive Date: 20121018
  Receipt Date: 20121107
  Transmission Date: 20130627
  Serious: Yes (Hospitalization, Disabling)
  Sender: FDA-Public Use
  Company Number: AT-ABBOTT-12P-009-0993729-00

PATIENT
  Age: 60 Year
  Sex: Female
  Weight: 70.5 kg

DRUGS (21)
  1. ZEMPLAR [Suspect]
     Indication: HYPERPARATHYROIDISM SECONDARY
     Dosage: 10-15 mcg/week
     Route: 042
     Dates: start: 20120317
  2. AGOPTON [Concomitant]
     Indication: PRODUCT USED FOR UNKNOWN INDICATION
     Dosage: 15 mg / 2x1 per day
     Route: 048
  3. CARENAL [Concomitant]
     Indication: PRODUCT USED FOR UNKNOWN INDICATION
     Route: 048
     Dates: start: 201002
  4. CIPRALEX [Concomitant]
     Indication: PRODUCT USED FOR UNKNOWN INDICATION
     Route: 048
     Dates: start: 201002
  5. METOPROLOL RETARD [Concomitant]
     Indication: PRODUCT USED FOR UNKNOWN INDICATION
     Dosage: 95 mg / 2x1 per day
     Route: 048
     Dates: start: 20120324
  6. MADOPAR [Concomitant]
     Indication: PRODUCT USED FOR UNKNOWN INDICATION
     Dosage: 50 mg-12.5MG / 1X1 per day
     Route: 048
  7. MAGNOSOLV [Concomitant]
     Indication: PRODUCT USED FOR UNKNOWN INDICATION
     Dosage: 1 saccet on demand
     Route: 048
     Dates: start: 20100211
  8. NEXIUM [Concomitant]
     Indication: PRODUCT USED FOR UNKNOWN INDICATION
     Route: 048
     Dates: start: 20120209
  9. NEUROBION FORTE [Concomitant]
     Route: 048
     Dates: start: 201104
  10. RENVELA [Concomitant]
     Indication: PRODUCT USED FOR UNKNOWN INDICATION
     Dosage: 800 mg / 6X1 per day
     Route: 048
     Dates: start: 201109
  11. THROMBO ASS [Concomitant]
     Indication: PRODUCT USED FOR UNKNOWN INDICATION
     Route: 048
     Dates: start: 20110419
  12. SORTIS [Concomitant]
     Indication: PRODUCT USED FOR UNKNOWN INDICATION
     Route: 048
     Dates: start: 200912
  13. PSYCHOPAX [Concomitant]
     Indication: PRODUCT USED FOR UNKNOWN INDICATION
     Dosage: Drops on demand
     Route: 048
     Dates: start: 201012
  14. OLEOVIT D3 [Concomitant]
     Indication: PRODUCT USED FOR UNKNOWN INDICATION
     Dosage: 20 gtt / week
     Route: 048
     Dates: start: 20120121
  15. THIOCTACID [Concomitant]
     Indication: PRODUCT USED FOR UNKNOWN INDICATION
     Dosage: 600 mg / week
     Route: 042
  16. NEORECORMON [Concomitant]
     Indication: PRODUCT USED FOR UNKNOWN INDICATION
     Dosage: 20000 IE / week
     Route: 042
     Dates: start: 2010
  17. SULTANOL [Concomitant]
     Indication: PRODUCT USED FOR UNKNOWN INDICATION
     Dosage: 0.1mg/1 hub per day
     Route: 055
     Dates: start: 20110915
  18. HALCION [Concomitant]
     Indication: PRODUCT USED FOR UNKNOWN INDICATION
     Route: 048
     Dates: start: 20120510
  19. NITROSPRAY [Concomitant]
     Indication: PRODUCT USED FOR UNKNOWN INDICATION
     Dosage: 1 puff on demand
     Route: 060
     Dates: start: 20120424
  20. CPS [Concomitant]
     Indication: PRODUCT USED FOR UNKNOWN INDICATION
     Dosage: 1 sacchet on demand
     Route: 048
     Dates: start: 201204
  21. PRIDAX [Concomitant]
     Indication: PRODUCT USED FOR UNKNOWN INDICATION
     Dosage: 40 mg daily
     Route: 042
     Dates: start: 20120802

REACTIONS (5)
  - Skin ulcer [Recovered/Resolved with Sequelae]
  - Fatigue [Recovered/Resolved]
  - Pruritus [Recovered/Resolved]
  - Pruritus [Unknown]
  - Bone pain [Recovered/Resolved]
